FAERS Safety Report 4707922-2 (Version None)
Quarter: 2005Q2

REPORT INFORMATION
  Report Type: 
  Country: None (occurrence: None)
  Receive Date: 20050629
  Receipt Date: 20050505
  Transmission Date: 20051028
  Serious: No
  Sender: FDA-Public Use
  Company Number: 05P-163-0299884-00

PATIENT
  Age: 32 Year
  Sex: Female
  Weight: 105.4 kg

DRUGS (5)
  1. HUMIRA [Suspect]
     Indication: RHEUMATOID ARTHRITIS
     Dosage: 40 MG, 1 IN 2 WK, SUBCUTANEOUS
     Route: 058
     Dates: start: 20050301
  2. PHENOBARBITAL [Concomitant]
  3. TIAGABINE HYDROCHLORIDE [Concomitant]
  4. SULFASALAZINE [Concomitant]
  5. NORMENSAL [Concomitant]

REACTIONS (1)
  - MENSTRUATION IRREGULAR [None]
